FAERS Safety Report 13679868 (Version 2)
Quarter: 2017Q3

REPORT INFORMATION
  Report Type: Spontaneous
  Country: US (occurrence: US)
  Receive Date: 20170622
  Receipt Date: 20170928
  Transmission Date: 20171127
  Serious: Yes (Other)
  Sender: FDA-Public Use
  Company Number: US-BAYER-2017-116377

PATIENT
  Sex: Female

DRUGS (4)
  1. GADAVIST [Suspect]
     Active Substance: GADOBUTROL
     Indication: SPINAL OSTEOARTHRITIS
     Dosage: 8 CC,
     Route: 042
     Dates: start: 20131102, end: 20131102
  2. GADAVIST [Suspect]
     Active Substance: GADOBUTROL
     Indication: NUCLEAR MAGNETIC RESONANCE IMAGING SPINAL
     Dosage: UNK
     Dates: start: 201210
  3. GADAVIST [Suspect]
     Active Substance: GADOBUTROL
     Indication: NUCLEAR MAGNETIC RESONANCE IMAGING BRAIN
     Dosage: 7.5 CC, UNK
     Dates: start: 20131102, end: 20131102
  4. GADAVIST [Suspect]
     Active Substance: GADOBUTROL
     Indication: NUCLEAR MAGNETIC RESONANCE IMAGING
     Dosage: 10 CC,
     Route: 042
     Dates: start: 20130401, end: 20130401

REACTIONS (3)
  - Contrast media reaction [None]
  - Suicidal ideation [None]
  - Crying [None]
